FAERS Safety Report 9357813 (Version 1)
Quarter: 2013Q2

REPORT INFORMATION
  Report Type: Spontaneous
  Country: US (occurrence: None)
  Receive Date: 20130619
  Receipt Date: 20130619
  Transmission Date: 20140414
  Serious: Yes (Life-Threatening, Hospitalization)
  Sender: FDA-Public Use
  Company Number: None

PATIENT
  Age: 86 Year
  Sex: Male
  Weight: 79.5 kg

DRUGS (1)
  1. IOHEXOL [Suspect]
     Indication: COMPUTERISED TOMOGRAM
     Route: 042
     Dates: start: 20130322, end: 20130322

REACTIONS (5)
  - Chest pain [None]
  - Loss of consciousness [None]
  - Anaphylactic reaction [None]
  - Dyspnoea [None]
  - Blood glucose increased [None]
